FAERS Safety Report 6347535-2 (Version None)
Quarter: 2009Q3

REPORT INFORMATION
  Report Type: 
  Country: None (occurrence: None)
  Receive Date: 20090908
  Receipt Date: 20090908
  Transmission Date: 20100115
  Serious: Yes (Life-Threatening, Hospitalization, Disabling)
  Sender: FDA-Public Use
  Company Number: None

PATIENT
  Age: 45 Year
  Sex: Female

DRUGS (7)
  1. LISINOPRIL [Suspect]
     Indication: HYPERTENSION
     Dosage: 20MG DAILY PO
     Route: 048
     Dates: start: 20090309, end: 20090718
  2. ALBUTEROL [Concomitant]
  3. ESOMEPRAZOLE [Concomitant]
  4. LISINOPRIL [Concomitant]
  5. CALCIUM [Concomitant]
  6. FERROUS SULFATE TAB [Concomitant]
  7. ASPIRIN [Concomitant]

REACTIONS (4)
  - NASOPHARYNGITIS [None]
  - OROPHARYNGEAL PAIN [None]
  - PHARYNGEAL OEDEMA [None]
  - SWOLLEN TONGUE [None]
